FAERS Safety Report 7662691-1 (Version None)
Quarter: 2011Q3

REPORT INFORMATION
  Report Type: 
  Country: None (occurrence: None)
  Receive Date: 20110805
  Receipt Date: 20100825
  Transmission Date: 20111222
  Serious: No
  Sender: FDA-Public Use
  Company Number: US-ABBOTT-10P-163-0666034-00

PATIENT
  Sex: Female
  Weight: 74.002 kg

DRUGS (8)
  1. DIOVAN [Concomitant]
     Indication: HYPERTENSION
  2. SINGULAIR [Concomitant]
     Indication: HYPERSENSITIVITY
  3. METFORMIN HCL [Concomitant]
     Indication: GLUCOSE TOLERANCE IMPAIRED
  4. NIASPAN [Suspect]
     Indication: BLOOD CHOLESTEROL INCREASED
     Dates: start: 20090401, end: 20090801
  5. NIASPAN [Suspect]
     Dates: start: 20100101, end: 20100101
  6. NIASPAN [Suspect]
     Dates: start: 20100101
  7. ASPIRIN [Concomitant]
     Indication: PRODUCT USED FOR UNKNOWN INDICATION
  8. NIASPAN [Suspect]
     Dates: start: 20090801, end: 20100101

REACTIONS (6)
  - FLUSHING [None]
  - ERYTHEMA [None]
  - MYALGIA [None]
  - PALPITATIONS [None]
  - PARAESTHESIA [None]
  - PAIN [None]
